FAERS Safety Report 4824309-2 (Version None)
Quarter: 2005Q4

REPORT INFORMATION
  Report Type: 
  Country: None (occurrence: None)
  Receive Date: 20051108
  Receipt Date: 20051027
  Transmission Date: 20060501
  Serious: Yes (Life-Threatening, Other)
  Sender: FDA-Public Use
  Company Number: USA0510109787

PATIENT
  Age: 16 Year
  Sex: Male
  Weight: 55 kg

DRUGS (2)
  1. STRATTERA [Suspect]
     Indication: ATTENTION DEFICIT/HYPERACTIVITY DISORDER
     Dosage: 40 MG DAY
     Dates: start: 20050906
  2. IBUPROFEN [Concomitant]

REACTIONS (4)
  - AGGRESSION [None]
  - IMPRISONMENT [None]
  - LACERATION [None]
  - PHYSICAL ASSAULT [None]
